FAERS Safety Report 8527430 (Version 2)
Quarter: 2012Q4

REPORT INFORMATION
  Report Type: 
  Country: US (occurrence: US)
  Receive Date: 20120424
  Receipt Date: 20121022
  Transmission Date: 20130627
  Serious: Yes (Hospitalization)
  Sender: FDA-Public Use
  Company Number: US-BAYER-2012-039178

PATIENT
  Age: 25 Year
  Sex: Female
  Weight: 77.1 kg

DRUGS (2)
  1. YASMIN [Suspect]
     Dosage: UNK
     Dates: start: 2005, end: 2007
  2. YAZ [Suspect]
     Dosage: UNK
     Dates: start: 2005, end: 2007

REACTIONS (3)
  - Gallbladder disorder [None]
  - Injury [None]
  - Pain [None]
